FAERS Safety Report 9524338 (Version 1)
Quarter: 2013Q1

REPORT INFORMATION
  Report Type: Spontaneous
  Country: US (occurrence: None)
  Receive Date: 20130314
  Receipt Date: 20130314
  Transmission Date: 20140127
  Serious: No
  Sender: FDA-Public Use
  Company Number: 1301USA003727

PATIENT
  Age: 61 Year
  Sex: Male
  Weight: 93 kg

DRUGS (4)
  1. VICTRELIS (BOCEPREVIR) CAPSULE, 200MG [Suspect]
     Dosage: 200 MG (TAKE 4 CAPSULES EVERY 8 HOURS), ORAL
     Route: 048
  2. PEGASYS (PEGINTERFERON ALFA-2A) INJECTION [Suspect]
  3. RIBAVIRIN (RIBAVIRIN) CAPSULE, 200MG [Suspect]
     Route: 048
  4. NEUPOGEN (FILGRASTIM) [Concomitant]

REACTIONS (4)
  - White blood cell count decreased [None]
  - Lymphatic disorder [None]
  - Haematocrit decreased [None]
  - Haemoglobin increased [None]
